FAERS Safety Report 12653981 (Version 1)
Quarter: 2016Q3

REPORT INFORMATION
  Report Type: Spontaneous
  Country: JP (occurrence: JP)
  Receive Date: 20160816
  Receipt Date: 20160816
  Transmission Date: 20161109
  Serious: Yes (Life-Threatening, Hospitalization, Other)
  Sender: FDA-Public Use
  Company Number: JP-PFIZER INC-2016323182

PATIENT
  Age: 74 Year
  Sex: Female
  Weight: 43.8 kg

DRUGS (1)
  1. SUTENT [Suspect]
     Active Substance: SUNITINIB MALATE
     Indication: RENAL CELL CARCINOMA
     Dosage: 25 MG, DAILY
     Route: 048
     Dates: start: 20150901, end: 20160407

REACTIONS (9)
  - Cardiac failure [Recovered/Resolved]
  - Decreased appetite [Recovered/Resolved]
  - Cardiac arrest [Unknown]
  - Malaise [Recovered/Resolved]
  - Respiratory arrest [Unknown]
  - Diarrhoea [Recovered/Resolved]
  - Pleural effusion [Unknown]
  - Ventricular tachycardia [Unknown]
  - Fall [Unknown]

NARRATIVE: CASE EVENT DATE: 20160401
